FAERS Safety Report 6061194-8 (Version None)
Quarter: 2009Q1

REPORT INFORMATION
  Report Type: 
  Country: None (occurrence: None)
  Receive Date: 20090202
  Receipt Date: 20090120
  Transmission Date: 20090719
  Serious: Yes (Other)
  Sender: FDA-Public Use
  Company Number: US-PFIZER INC-2009159716

PATIENT
  Sex: Female
  Weight: 54.431 kg

DRUGS (5)
  1. NORVASC [Suspect]
  2. NORVASC [Suspect]
     Dosage: 10 MG, 1X/DAY
  3. AMLODIPINE BESILATE [Suspect]
  4. ATENOLOL [Concomitant]
     Dosage: UNK
  5. ASPIRIN [Concomitant]
     Dosage: UNK

REACTIONS (4)
  - CATARACT OPERATION [None]
  - HEADACHE [None]
  - HOT FLUSH [None]
  - MEDICATION ERROR [None]
